FAERS Safety Report 9780735 (Version 2)
Quarter: 2014Q1

REPORT INFORMATION
  Report Type: Spontaneous
  Country: US (occurrence: US)
  Receive Date: 20131224
  Receipt Date: 20140110
  Transmission Date: 20141002
  Serious: Yes (Other)
  Sender: FDA-Public Use
  Company Number: US-SA-2013SA133744

PATIENT
  Age: 43 Year
  Sex: Female
  Weight: 106 kg

DRUGS (6)
  1. LANTUS SOLOSTAR [Suspect]
     Indication: TYPE 2 DIABETES MELLITUS
     Dosage: DOSE:60 UNIT(S)
     Route: 058
     Dates: start: 201304
  2. LANTUS SOLOSTAR [Suspect]
     Indication: TYPE 2 DIABETES MELLITUS
     Dosage: DOSE:60 UNIT(S)
     Route: 058
     Dates: start: 201304
  3. LANTUS SOLOSTAR [Suspect]
     Indication: TYPE 2 DIABETES MELLITUS
     Dosage: DOSE:60 UNIT(S)
     Route: 058
     Dates: start: 201304
  4. SOLOSTAR [Concomitant]
  5. SOLOSTAR [Concomitant]
  6. SOLOSTAR [Concomitant]

REACTIONS (3)
  - Foot fracture [Unknown]
  - Gait disturbance [Unknown]
  - Incorrect product storage [Unknown]
